FAERS Safety Report 6236297-5 (Version None)
Quarter: 2009Q2

REPORT INFORMATION
  Report Type: 
  Country: None (occurrence: None)
  Receive Date: 20090619
  Receipt Date: 20090609
  Transmission Date: 20091009
  Serious: Yes (Hospitalization)
  Sender: FDA-Public Use
  Company Number: JP-ROCHE-637744

PATIENT
  Age: 58 Year
  Sex: Female

DRUGS (3)
  1. PEGASYS [Suspect]
     Indication: HEPATITIS C
     Dosage: UNITS: MCG.
     Route: 058
     Dates: start: 20090224
  2. ADALAT [Suspect]
     Indication: DRUG USE FOR UNKNOWN INDICATION
     Route: 048
  3. DIOVAN [Suspect]
     Indication: DRUG USE FOR UNKNOWN INDICATION
     Route: 048

REACTIONS (1)
  - ATRIOVENTRICULAR BLOCK [None]
